FAERS Safety Report 4663809-5 (Version None)
Quarter: 2005Q2

REPORT INFORMATION
  Report Type: 
  Country: None (occurrence: None)
  Receive Date: 20050516
  Receipt Date: 20050503
  Transmission Date: 20051028
  Serious: Yes (Other)
  Sender: FDA-Public Use
  Company Number: 2005010130

PATIENT
  Age: 29 Year
  Sex: Male

DRUGS (1)
  1. BEXTRA [Suspect]
     Indication: ARTHRALGIA
     Dosage: EVERY DAY, ORAL
     Route: 048
     Dates: start: 20041001

REACTIONS (3)
  - DERMATITIS [None]
  - LYMPHOMATOID PAPULOSIS [None]
  - UPPER RESPIRATORY TRACT INFECTION [None]
